FAERS Safety Report 9768664 (Version 2)
Quarter: 2014Q1

REPORT INFORMATION
  Report Type: Spontaneous
  Country: JP (occurrence: JP)
  Receive Date: 20131218
  Receipt Date: 20140123
  Transmission Date: 20141002
  Serious: No
  Sender: FDA-Public Use
  Company Number: JP-JNJFOC-20131203198

PATIENT
  Age: 5 Decade
  Sex: Female

DRUGS (2)
  1. DUROTEP MT [Suspect]
     Indication: PAIN
     Route: 062
  2. DUROTEP MT [Suspect]
     Indication: PAIN
     Route: 062

REACTIONS (4)
  - Drug prescribing error [Unknown]
  - Inappropriate schedule of drug administration [Unknown]
  - Wrong technique in drug usage process [Unknown]
  - Feeling abnormal [Recovered/Resolved]
